FAERS Safety Report 12925644 (Version 1)
Quarter: 2016Q4

REPORT INFORMATION
  Report Type: Spontaneous
  Country: US (occurrence: US)
  Receive Date: 20161108
  Receipt Date: 20161108
  Transmission Date: 20170207
  Serious: No
  Sender: FDA-Public Use
  Company Number: US-SA-2016SA193553

PATIENT
  Age: 54 Year
  Sex: Female

DRUGS (2)
  1. PRALUENT [Suspect]
     Active Substance: ALIROCUMAB
     Indication: TYPE V HYPERLIPIDAEMIA
     Route: 065
     Dates: start: 201607, end: 201609
  2. ALIROCUMAB PREFILLED PEN [Concomitant]
     Active Substance: ALIROCUMAB
     Indication: TYPE V HYPERLIPIDAEMIA
     Dates: start: 201607, end: 201609

REACTIONS (8)
  - Skin ulcer [Unknown]
  - Skin tightness [Unknown]
  - Disorientation [Unknown]
  - Feeling abnormal [Unknown]
  - Swelling [Unknown]
  - Confusional state [Unknown]
  - Disturbance in attention [Unknown]
  - Blister [Unknown]
